FAERS Safety Report 8529540-0 (Version None)
Quarter: 2012Q3

REPORT INFORMATION
  Report Type: 
  Country: None (occurrence: None)
  Receive Date: 20120723
  Receipt Date: 20120712
  Transmission Date: 20120928
  Serious: Yes (Hospitalization, Other)
  Sender: FDA-Public Use
  Company Number: DE-BAYER-201038247GPV

PATIENT
  Age: 70 Year
  Sex: Male
  Weight: 80 kg

DRUGS (13)
  1. SPIRONOLACTONE [Concomitant]
     Dosage: 1-0-0
  2. PANTOPRAZOLE [Concomitant]
     Dosage: 1-0-0
  3. ALLOPURINOL [Concomitant]
     Dosage: 1-0-0
  4. NEXAVAR [Suspect]
     Dosage: 600 MG (DAILY DOSE), QD, ORAL
     Route: 048
     Dates: start: 20100725, end: 20100728
  5. NEXAVAR [Suspect]
     Dosage: 400 MG (DAILY DOSE), QD, ORAL
     Route: 048
     Dates: start: 20100804, end: 20101220
  6. RAMIPRIL [Concomitant]
     Dosage: 1-0-0
  7. TORSEMIDE [Concomitant]
     Dosage: DOSE REDUCED
  8. METFORMIN HYDROCHLORIDE [Concomitant]
     Dosage: CURRENTLY PAUSED
  9. NEXAVAR [Suspect]
     Indication: HEPATIC NEOPLASM MALIGNANT
     Route: 048
     Dates: start: 20100615, end: 20100630
  10. TORSEMIDE [Concomitant]
  11. NEXAVAR [Suspect]
     Dosage: 400 MG (DAILY DOSE), QD, ORAL
     Route: 048
     Dates: start: 20100707, end: 20100724
  12. CALCIMAGON-D3 [Concomitant]
     Dosage: 1-0-0
  13. COLECALCIFEROL [Concomitant]
     Dosage: 400 IU

REACTIONS (3)
  - AGEUSIA [None]
  - ANOSMIA [None]
  - HEPATIC ENCEPHALOPATHY [None]
